FAERS Safety Report 24556593 (Version 2)
Quarter: 2024Q4

REPORT INFORMATION
  Report Type: Spontaneous
  Country: US (occurrence: US)
  Receive Date: 20241028
  Receipt Date: 20241126
  Transmission Date: 20250114
  Serious: Yes (Hospitalization, Other)
  Sender: SANOFI AVENTIS
  Company Number: US-SA-2024SA309040

PATIENT
  Age: 40 Year
  Sex: Male

DRUGS (2)
  1. ALPROLIX [Suspect]
     Active Substance: EFTRENONACOG ALFA
     Indication: Factor VIII deficiency
     Dosage: 14500 IU, Q10D
     Route: 042
     Dates: start: 202410
  2. ALPROLIX [Suspect]
     Active Substance: EFTRENONACOG ALFA
     Indication: Factor VIII deficiency
     Dosage: 14500 IU, Q10D
     Route: 042
     Dates: start: 202410

REACTIONS (2)
  - Haemorrhage [Recovered/Resolved]
  - Renal transplant [Unknown]

NARRATIVE: CASE EVENT DATE: 20241015
